FAERS Safety Report 6068727-6 (Version None)
Quarter: 2009Q1

REPORT INFORMATION
  Report Type: 
  Country: None (occurrence: None)
  Receive Date: 20090206
  Receipt Date: 20090130
  Transmission Date: 20090719
  Serious: Yes (Other)
  Sender: FDA-Public Use
  Company Number: B0557769A

PATIENT
  Age: 19 Year
  Sex: Male

DRUGS (1)
  1. LAMICTAL [Suspect]
     Indication: DRUG USE FOR UNKNOWN INDICATION
     Route: 048
     Dates: start: 20081101, end: 20081210

REACTIONS (4)
  - HYPERBILIRUBINAEMIA [None]
  - LYMPHADENOPATHY [None]
  - PRURITUS [None]
  - RASH PAPULAR [None]
